FAERS Safety Report 5475248-8 (Version None)
Quarter: 2007Q4

REPORT INFORMATION
  Report Type: 
  Country: None (occurrence: None)
  Receive Date: 20071002
  Receipt Date: 20070920
  Transmission Date: 20080405
  Serious: Yes (Other)
  Sender: FDA-Public Use
  Company Number: US-PFIZER INC-2007079842

PATIENT
  Sex: Male
  Weight: 74.8 kg

DRUGS (3)
  1. CHANTIX [Suspect]
     Indication: EX-SMOKER
     Route: 048
  2. LIPITOR [Concomitant]
  3. TENORMIN [Concomitant]

REACTIONS (5)
  - ANGER [None]
  - DIARRHOEA [None]
  - GASTROINTESTINAL DISORDER [None]
  - HAEMATOCHEZIA [None]
  - VOMITING [None]
